FAERS Safety Report 21170654 (Version 1)
Quarter: 2022Q3

REPORT INFORMATION
  Report Type: Spontaneous
  Country: PL (occurrence: None)
  Receive Date: 20220804
  Receipt Date: 20220804
  Transmission Date: 20221027
  Serious: Yes (Other)
  Sender: FDA-Public Use
  Company Number: PL-ROCHE-3148511

PATIENT
  Age: 54 Year
  Sex: Male

DRUGS (2)
  1. ALECENSA [Suspect]
     Active Substance: ALECTINIB HYDROCHLORIDE
     Indication: Non-small cell lung cancer
     Dosage: CYCLE 1 OF THE TREATMENT WITH THE STANDARD DOSE OF 600 MG TWICE DAILY, ON 12/JUL/2022, ALECTINIB TRE
     Route: 065
     Dates: start: 20190910
  2. HEPARIN [Concomitant]
     Active Substance: HEPARIN SODIUM
     Route: 058

REACTIONS (4)
  - Pulmonary embolism [Recovered/Resolved]
  - Sinus bradycardia [Not Recovered/Not Resolved]
  - Cough [Recovered/Resolved]
  - Therapy partial responder [Recovered/Resolved]

NARRATIVE: CASE EVENT DATE: 20190924
